FAERS Safety Report 7790258-3 (Version None)
Quarter: 2011Q3

REPORT INFORMATION
  Report Type: 
  Country: None (occurrence: None)
  Receive Date: 20110930
  Receipt Date: 20110908
  Transmission Date: 20111222
  Serious: Yes (Other)
  Sender: FDA-Public Use
  Company Number: JP-SANOFI-AVENTIS-2011SA059784

PATIENT
  Sex: Male

DRUGS (2)
  1. LANTUS [Suspect]
     Route: 051
  2. SOLOSTAR [Suspect]

REACTIONS (1)
  - DEVICE MALFUNCTION [None]
